FAERS Safety Report 7619902-8 (Version None)
Quarter: 2011Q3

REPORT INFORMATION
  Report Type: 
  Country: None (occurrence: None)
  Receive Date: 20110719
  Receipt Date: 20110706
  Transmission Date: 20111222
  Serious: Yes (Hospitalization)
  Sender: FDA-Public Use
  Company Number: KR-ELI_LILLY_AND_COMPANY-KR201105007663

PATIENT
  Age: 65 Year
  Sex: Male

DRUGS (3)
  1. HUMALOG MIX 75/25 [Suspect]
     Dosage: 44 U, QD
     Dates: start: 20110501
  2. HUMALOG MIX 75/25 [Suspect]
     Indication: TYPE 2 DIABETES MELLITUS
     Dosage: 35 U, QD
     Dates: start: 20110401, end: 20110501
  3. HUMALOG MIX 75/25 [Suspect]
     Dosage: 6 U, PRN
     Dates: start: 20110501

REACTIONS (1)
  - HYPERGLYCAEMIA [None]
